FAERS Safety Report 8254366-5 (Version None)
Quarter: 2012Q2

REPORT INFORMATION
  Report Type: 
  Country: None (occurrence: None)
  Receive Date: 20120402
  Receipt Date: 20120325
  Transmission Date: 20120825
  Serious: No
  Sender: FDA-Public Use
  Company Number: US-AMGEN-USASP2012019269

PATIENT
  Age: 52 Year
  Sex: Female

DRUGS (1)
  1. ENBREL [Suspect]
     Indication: PSORIASIS
     Dosage: 50 MG, QWK
     Dates: start: 20100921, end: 20111201

REACTIONS (4)
  - OEDEMA PERIPHERAL [None]
  - INJECTION SITE PAIN [None]
  - CHEST DISCOMFORT [None]
  - DRUG INEFFECTIVE [None]
